FAERS Safety Report 14974636 (Version 1)
Quarter: 2018Q2

REPORT INFORMATION
  Report Type: Spontaneous
  Country: DE (occurrence: DE)
  Receive Date: 20180605
  Receipt Date: 20180605
  Transmission Date: 20180711
  Serious: Yes (Other)
  Sender: FDA-Public Use
  Company Number: DE-CELLTRION INC.-2018DE020236

PATIENT

DRUGS (2)
  1. INFLIXIMAB (UNKNOWN) [Suspect]
     Active Substance: INFLIXIMAB
     Indication: COLITIS ULCERATIVE
     Dosage: UNK
     Route: 042
     Dates: start: 201601, end: 201601
  2. USTEKINUMAB [Concomitant]
     Active Substance: USTEKINUMAB

REACTIONS (2)
  - Dermatitis psoriasiform [Recovered/Resolved]
  - Neutrophilic dermatosis [Recovered/Resolved]
